FAERS Safety Report 11072549 (Version 2)
Quarter: 2015Q3

REPORT INFORMATION
  Report Type: Report from Study
  Country: US (occurrence: US)
  Receive Date: 20150428
  Receipt Date: 20150818
  Transmission Date: 20151125
  Serious: Yes (Death, Other)
  Sender: FDA-Public Use
  Company Number: US-GILEAD-2015-0150820

PATIENT
  Age: 54 Year
  Sex: Female

DRUGS (1)
  1. AMBRISENTAN [Suspect]
     Active Substance: AMBRISENTAN
     Indication: PULMONARY ARTERIAL HYPERTENSION
     Dosage: 10 MG, QD
     Route: 065
     Dates: start: 20110526, end: 20150331

REACTIONS (8)
  - Acute kidney injury [Fatal]
  - Hyperkalaemia [Fatal]
  - Portopulmonary hypertension [Fatal]
  - Retroperitoneal haemorrhage [Fatal]
  - Hypovolaemic shock [Fatal]
  - Acute respiratory failure [Fatal]
  - Metabolic acidosis [Fatal]
  - Hepatic cirrhosis [Fatal]
